FAERS Safety Report 13088114 (Version 2)
Quarter: 2017Q1

REPORT INFORMATION
  Report Type: Spontaneous
  Country: US (occurrence: US)
  Receive Date: 20170105
  Receipt Date: 20170119
  Transmission Date: 20170428
  Serious: No
  Sender: FDA-Public Use
  Company Number: US-GLAXOSMITHKLINE-US2017000312

PATIENT
  Sex: Female

DRUGS (8)
  1. INCRUSE ELLIPTA [Suspect]
     Active Substance: UMECLIDINIUM BROMIDE
     Indication: CHRONIC OBSTRUCTIVE PULMONARY DISEASE
     Dosage: 1 PUFF(S), QD
     Route: 055
     Dates: start: 201609
  2. LISINOPRIL. [Concomitant]
     Active Substance: LISINOPRIL
  3. PROAIR HFA [Concomitant]
     Active Substance: ALBUTEROL SULFATE
  4. VITAMIN B12 [Concomitant]
     Active Substance: CYANOCOBALAMIN
  5. COQ10 [Concomitant]
     Active Substance: UBIDECARENONE
  6. ALBUTEROL SULFATE NEBULISER SOLUTION [Concomitant]
     Active Substance: ALBUTEROL SULFATE
  7. PREDNISONE. [Concomitant]
     Active Substance: PREDNISONE
  8. ADVAIR HFA [Concomitant]
     Active Substance: FLUTICASONE PROPIONATE\SALMETEROL XINAFOATE
     Dosage: UNK

REACTIONS (3)
  - Drug ineffective [Not Recovered/Not Resolved]
  - Product quality issue [Unknown]
  - Dysgeusia [Unknown]
